FAERS Safety Report 6014732-5 (Version None)
Quarter: 2008Q4

REPORT INFORMATION
  Report Type: 
  Country: None (occurrence: None)
  Receive Date: 20081219
  Receipt Date: 20081209
  Transmission Date: 20090506
  Serious: Yes (Hospitalization)
  Sender: FDA-Public Use
  Company Number: DE-ABBOTT-08P-062-0492048-00

PATIENT
  Age: 63 Year
  Sex: Female
  Weight: 61 kg

DRUGS (10)
  1. HUMIRA (BLINDED) [Suspect]
     Indication: RHEUMATOID ARTHRITIS
     Route: 058
     Dates: start: 20080312
  2. METHOTREXATE [Suspect]
     Indication: RHEUMATOID ARTHRITIS
     Route: 048
     Dates: start: 20080312
  3. ACETYLSALICYLIC ACID [Concomitant]
     Indication: MIGRAINE
     Dates: start: 19700101
  4. CLIOGEST [Concomitant]
     Indication: HORMONE REPLACEMENT THERAPY
     Dates: start: 19880101
  5. DICLOFENAC DIETHYLAMINE [Concomitant]
     Indication: RHEUMATOID ARTHRITIS
     Dates: start: 20071201, end: 20080319
  6. OMEPRAZOLE SODIUM [Concomitant]
     Indication: PROPHYLAXIS AGAINST GASTROINTESTINAL ULCER
     Dates: start: 20080101, end: 20080319
  7. ZOPICLONE [Concomitant]
     Indication: SLEEP DISORDER
     Dates: start: 20080305
  8. ZOPICLONE [Concomitant]
     Indication: ARTHRALGIA
  9. FOLIC ACID [Concomitant]
     Indication: VITAMIN SUPPLEMENTATION
     Dates: start: 20080328
  10. CLINDAMYCIN [Concomitant]
     Indication: TOOTH INFECTION
     Dates: start: 20080807, end: 20080812

REACTIONS (1)
  - RENAL COLIC [None]
